FAERS Safety Report 7570133-X (Version None)
Quarter: 2011Q2

REPORT INFORMATION
  Report Type: 
  Country: None (occurrence: None)
  Receive Date: 20110622
  Receipt Date: 20110622
  Transmission Date: 20111010
  Serious: Yes (Disabling, Other)
  Sender: FDA-Public Use
  Company Number: None

PATIENT
  Age: 89 Year
  Sex: Male
  Weight: 38.1022 kg

DRUGS (1)
  1. FOCALIN XR [Suspect]
     Indication: ATTENTION DEFICIT/HYPERACTIVITY DISORDER
     Dosage: 5MG X1 DAILY ORAL
     Route: 048
     Dates: start: 20090326, end: 20090609

REACTIONS (4)
  - AGITATION [None]
  - AGGRESSION [None]
  - WEIGHT INCREASED [None]
  - HYPERSOMNIA [None]
